FAERS Safety Report 5504952-8 (Version None)
Quarter: 2007Q4

REPORT INFORMATION
  Report Type: 
  Country: None (occurrence: None)
  Receive Date: 20071102
  Receipt Date: 20071025
  Transmission Date: 20080405
  Serious: Yes (Life-Threatening, Hospitalization, Other)
  Sender: FDA-Public Use
  Company Number: US-NOVOPROD-267713

PATIENT

DRUGS (3)
  1. NOVOLOG [Suspect]
     Dosage: UNKNOWN
     Route: 058
  2. LANTUS [Suspect]
     Dosage: 30 IU, QD
     Route: 058
     Dates: end: 20070901
  3. ANTIBIOTICS [Concomitant]
     Indication: LIMB INJURY
     Route: 042

REACTIONS (3)
  - BLOOD GLUCOSE INCREASED [None]
  - HYPOGLYCAEMIC UNCONSCIOUSNESS [None]
  - WOUND [None]
